FAERS Safety Report 6851503-1 (Version None)
Quarter: 2010Q3

REPORT INFORMATION
  Report Type: 
  Country: None (occurrence: None)
  Receive Date: 20100717
  Receipt Date: 20080117
  Transmission Date: 20110219
  Serious: No
  Sender: FDA-Public Use
  Company Number: US-PFIZER INC-2008006852

PATIENT
  Sex: Female
  Weight: 69.9 kg

DRUGS (1)
  1. CHANTIX [Suspect]
     Indication: SMOKING CESSATION THERAPY
     Dates: start: 20071126

REACTIONS (4)
  - ANGER [None]
  - DEPRESSION [None]
  - EMOTIONAL DISORDER [None]
  - HYPERSOMNIA [None]
